FAERS Safety Report 7026511-0 (Version None)
Quarter: 2010Q4

REPORT INFORMATION
  Report Type: 
  Country: None (occurrence: None)
  Receive Date: 20101004
  Receipt Date: 20100928
  Transmission Date: 20110411
  Serious: No
  Sender: FDA-Public Use
  Company Number: US-PFIZER INC-2010123946

PATIENT
  Sex: Male

DRUGS (5)
  1. GEODON [Suspect]
     Indication: SCHIZOPHRENIA
     Dosage: 20 MG, 2X/WEEK
     Route: 048
     Dates: start: 20020101
  2. GEODON [Suspect]
     Dosage: 40 MG, 2X/DAY
     Route: 048
     Dates: start: 20020101
  3. GEODON [Suspect]
     Dosage: 60 MG, 2X/DAY
     Route: 048
     Dates: start: 20020101
  4. GEODON [Suspect]
     Dosage: 80 MG, 2X/DAY
     Route: 048
     Dates: start: 20020101
  5. ZYPREXA [Concomitant]
     Dosage: UNK

REACTIONS (1)
  - DRUG INEFFECTIVE [None]
